FAERS Safety Report 18338345 (Version 2)
Quarter: 2020Q4

REPORT INFORMATION
  Report Type: Spontaneous
  Country: US (occurrence: US)
  Receive Date: 20201002
  Receipt Date: 20201008
  Transmission Date: 20210113
  Serious: Yes (Death, Hospitalization)
  Sender: FDA-Public Use
  Company Number: US-PFIZER INC-2020379529

PATIENT
  Age: 64 Year
  Sex: Male
  Weight: 92.8 kg

DRUGS (16)
  1. VASOPRESSIN. [Suspect]
     Active Substance: VASOPRESSIN
     Indication: SHOCK
     Dosage: 0.04 IU (PER MIN)
  2. NOREPINEPHRINE BITARTRATE. [Suspect]
     Active Substance: NOREPINEPHRINE BITARTRATE
     Indication: SHOCK
     Dosage: 0.15 UG/KG (PER MIN; REQUIREMENTS CONTINUED TO RISE, AND ONCE THEY REACHED 0.15 UG/KG/MIN)
  3. NOREPINEPHRINE BITARTRATE. [Suspect]
     Active Substance: NOREPINEPHRINE BITARTRATE
     Dosage: 0.2 UG/KG (PER MIN)
  4. NOREPINEPHRINE BITARTRATE. [Suspect]
     Active Substance: NOREPINEPHRINE BITARTRATE
     Dosage: 0.08 UG/KG (PER MIN)
  5. ANGIOTENSIN II [Suspect]
     Active Substance: ANGIOTENSIN II
     Indication: SHOCK
     Dosage: UNK
  6. EPINEPHRINE. [Suspect]
     Active Substance: EPINEPHRINE
     Indication: SHOCK
     Dosage: 0.05 UG/KG (PER MIN)
     Route: 065
  7. EPINEPHRINE. [Suspect]
     Active Substance: EPINEPHRINE
     Dosage: 0.06 UG/KG (PER MIN)
     Route: 065
  8. NOREPINEPHRINE BITARTRATE. [Suspect]
     Active Substance: NOREPINEPHRINE BITARTRATE
     Dosage: 0.02 UG/KG (MIN; REDUCED)
  9. ANGIOTENSIN II [Suspect]
     Active Substance: ANGIOTENSIN II
     Dosage: WEANED
  10. ANGIOTENSIN II [Suspect]
     Active Substance: ANGIOTENSIN II
     Dosage: UNK
  11. ANGIOTENSIN II [Suspect]
     Active Substance: ANGIOTENSIN II
     Dosage: WEANED
  12. VASOPRESSIN. [Suspect]
     Active Substance: VASOPRESSIN
     Dosage: 0.03 IU (PER MIN)
  13. ASCORBIC ACID. [Suspect]
     Active Substance: ASCORBIC ACID
     Indication: SHOCK
     Dosage: 1.5 G, 4X/DAY (EVERY 6 HOURS)
     Route: 042
  14. METHYLENE BLUE. [Suspect]
     Active Substance: METHYLENE BLUE
     Indication: SHOCK
     Dosage: 100 MG
  15. HYDROXOCOBALAMIN [Suspect]
     Active Substance: HYDROXOCOBALAMIN
     Indication: SHOCK
     Dosage: 5 G
     Route: 042
  16. HYDROCORTISONE. [Suspect]
     Active Substance: HYDROCORTISONE
     Indication: SHOCK
     Dosage: UNK (STRESS DOSE)

REACTIONS (1)
  - Drug ineffective [Fatal]
